FAERS Safety Report 4598443-9 (Version None)
Quarter: 2005Q1

REPORT INFORMATION
  Report Type: 
  Country: None (occurrence: None)
  Receive Date: 20050304
  Receipt Date: 20050224
  Transmission Date: 20050727
  Serious: Yes (Hospitalization)
  Sender: FDA-Public Use
  Company Number: US-JNJFOC-20050206220

PATIENT
  Sex: Female

DRUGS (2)
  1. DURAGESIC-100 [Suspect]
     Route: 062
  2. HYDROCODONE [Concomitant]
     Indication: PAIN
     Route: 049

REACTIONS (2)
  - CHOLELITHIASIS [None]
  - DRUG INEFFECTIVE [None]
